FAERS Safety Report 9519137 (Version 1)
Quarter: 2013Q3

REPORT INFORMATION
  Report Type: Spontaneous
  Country: US (occurrence: None)
  Receive Date: 20130911
  Receipt Date: 20130911
  Transmission Date: 20140515
  Serious: Yes (Life-Threatening, Disabling)
  Sender: FDA-Public Use
  Company Number: None

PATIENT
  Age: 47 Year
  Sex: Male
  Weight: 71.67 kg

DRUGS (1)
  1. PREDNISONE [Suspect]
     Indication: BACK INJURY
     Route: 048
     Dates: start: 20050925, end: 20061201

REACTIONS (2)
  - Tension [None]
  - Violence-related symptom [None]
